FAERS Safety Report 4682021-7 (Version None)
Quarter: 2005Q2

REPORT INFORMATION
  Report Type: 
  Country: None (occurrence: None)
  Receive Date: 20050606
  Receipt Date: 20050524
  Transmission Date: 20051028
  Serious: Yes (Other)
  Sender: FDA-Public Use
  Company Number: ES-JNJFOC-20050406229

PATIENT
  Age: 54 Year
  Sex: Male
  Weight: 84 kg

DRUGS (10)
  1. REMICADE [Suspect]
     Indication: ANKYLOSING SPONDYLITIS
     Route: 042
  2. SINEMET [Concomitant]
     Route: 049
  3. SINEMET [Concomitant]
     Indication: PARKINSONISM
     Route: 049
  4. SOLIGEN [Concomitant]
     Indication: PARKINSON'S DISEASE
     Dosage: 2X 2MG TABLETS ONCE A DAY
     Route: 049
  5. MESTINON [Concomitant]
     Indication: MYASTHENIA GRAVIS
     Route: 049
  6. DIANBEN [Concomitant]
     Route: 065
  7. NOVONORM [Concomitant]
     Dosage: 4 TABLETS (1-2-1)
     Route: 049
  8. DIASTABOL [Concomitant]
     Route: 049
  9. AERIUS [Concomitant]
     Route: 049
  10. PANTECTA [Concomitant]
     Route: 049

REACTIONS (4)
  - HERPES ZOSTER [None]
  - MYASTHENIA GRAVIS [None]
  - PYODERMA [None]
  - THROMBOCYTOPENIA [None]
